FAERS Safety Report 6518126-5 (Version None)
Quarter: 2009Q4

REPORT INFORMATION
  Report Type: 
  Country: None (occurrence: None)
  Receive Date: 20091224
  Receipt Date: 20091209
  Transmission Date: 20100525
  Serious: Yes (Other)
  Sender: FDA-Public Use
  Company Number: ES-PFIZER INC-2009308242

PATIENT
  Age: 53 Year
  Sex: Female

DRUGS (3)
  1. SILDENAFIL CITRATE [Suspect]
     Indication: PULMONARY HYPERTENSION
     Dosage: UNK
  2. VERAPAMIL [Concomitant]
  3. DIURETICS [Concomitant]
     Indication: HYPERTROPHIC CARDIOMYOPATHY

REACTIONS (2)
  - LEFT VENTRICLE OUTFLOW TRACT OBSTRUCTION [None]
  - MITRAL VALVE INCOMPETENCE [None]
